FAERS Safety Report 6085937-2 (Version None)
Quarter: 2009Q1

REPORT INFORMATION
  Report Type: 
  Country: None (occurrence: None)
  Receive Date: 20090217
  Receipt Date: 20090217
  Transmission Date: 20090719
  Serious: No
  Sender: FDA-Public Use
  Company Number: None

PATIENT
  Age: 49 Year
  Sex: Female
  Weight: 63.5036 kg

DRUGS (1)
  1. BONIVA [Suspect]
     Indication: OSTEOPENIA
     Dosage: ONE PILL ONCE A MONTH PO
     Route: 048
     Dates: start: 20090214, end: 20090214

REACTIONS (4)
  - ARTHRALGIA [None]
  - BACK PAIN [None]
  - IMPAIRED WORK ABILITY [None]
  - NO THERAPEUTIC RESPONSE [None]
